FAERS Safety Report 6979447-5 (Version None)
Quarter: 2010Q3

REPORT INFORMATION
  Report Type: 
  Country: None (occurrence: None)
  Receive Date: 20100908
  Receipt Date: 20100824
  Transmission Date: 20110219
  Serious: Yes (Death)
  Sender: FDA-Public Use
  Company Number: FKO201000353

PATIENT
  Age: 53 Year
  Sex: Female

DRUGS (4)
  1. CISPLATIN [Suspect]
     Indication: NON-SMALL CELL LUNG CANCER
  2. GEMCITABINE [Suspect]
     Indication: NON-SMALL CELL LUNG CANCER
  3. CARBOPLATIN [Suspect]
     Indication: NON-SMALL CELL LUNG CANCER
  4. GEFITINIB (MANUFACTURER UNKNOWN) (GEFITINIB) (GEFITINIB) [Suspect]
     Indication: NON-SMALL CELL LUNG CANCER

REACTIONS (3)
  - HAEMATOTOXICITY [None]
  - MALIGNANT NEOPLASM PROGRESSION [None]
  - NON-SMALL CELL LUNG CANCER [None]
